FAERS Safety Report 7095650-0 (Version None)
Quarter: 2010Q4

REPORT INFORMATION
  Report Type: 
  Country: None (occurrence: None)
  Receive Date: 20101111
  Receipt Date: 20101101
  Transmission Date: 20110411
  Serious: Yes (Other)
  Sender: FDA-Public Use
  Company Number: PHHO2010US16590

PATIENT
  Sex: Male

DRUGS (3)
  1. FTY 720 FTY+CAP+MSC [Suspect]
     Indication: MULTIPLE SCLEROSIS
     Dosage: DOSE
     Route: 048
  2. FTY 720 FTY+CAP+MSC [Suspect]
     Dosage: 0.5MG
     Route: 048
  3. INFLUENZA VACCINE [Suspect]

REACTIONS (1)
  - NASOPHARYNGITIS [None]
